FAERS Safety Report 7090165-8 (Version None)
Quarter: 2010Q4

REPORT INFORMATION
  Report Type: 
  Country: None (occurrence: None)
  Receive Date: 20101105
  Receipt Date: 20101105
  Transmission Date: 20110411
  Serious: Yes (Hospitalization)
  Sender: FDA-Public Use
  Company Number: None

PATIENT
  Sex: Male
  Weight: 50.3493 kg

DRUGS (7)
  1. LORAZEPAM [Suspect]
     Indication: SEDATION
     Dosage: 3 MG ONCE PO
     Route: 048
     Dates: start: 20100817
  2. LORAZEPAM [Suspect]
  3. VALPROIC ACID [Concomitant]
  4. OMEPRAZOLE [Concomitant]
  5. FERROUS SULFATE [Concomitant]
  6. CALCIUM CARBONATE [Concomitant]
  7. VITAMIN D [Concomitant]

REACTIONS (3)
  - DEHYDRATION [None]
  - HYPOTENSION [None]
  - SEDATION [None]
